FAERS Safety Report 7770156-1 (Version None)
Quarter: 2011Q3

REPORT INFORMATION
  Report Type: 
  Country: None (occurrence: None)
  Receive Date: 20110922
  Receipt Date: 20110919
  Transmission Date: 20111222
  Serious: Yes (Hospitalization)
  Sender: FDA-Public Use
  Company Number: US-TEVA-301396USA

PATIENT
  Age: 49 Year
  Sex: Female

DRUGS (5)
  1. DIHYDROERGOTAMINE MESYLATE [Interacting]
     Route: 040
  2. GABAPENTIN [Concomitant]
  3. PROCET                             /01554201/ [Concomitant]
  4. NICOTINE [Interacting]
     Indication: SMOKING CESSATION THERAPY
     Dosage: 7 MILLIGRAM; AT BEDTIME
     Route: 062
  5. VERAPAMIL [Suspect]
     Indication: HYPERTENSION
     Dosage: 120 MILLIGRAM; AT BEDTIME

REACTIONS (2)
  - PRINZMETAL ANGINA [None]
  - DRUG INTERACTION [None]
